FAERS Safety Report 14248297 (Version 6)
Quarter: 2018Q1

REPORT INFORMATION
  Report Type: Spontaneous
  Country: IT (occurrence: IT)
  Receive Date: 20171204
  Receipt Date: 20180302
  Transmission Date: 20180508
  Serious: Yes (Other)
  Sender: FDA-Public Use
  Company Number: IT-TEVA-2016-12777

PATIENT
  Age: 71 Year
  Sex: Female

DRUGS (7)
  1. FLUOROURACIL. [Suspect]
     Active Substance: FLUOROURACIL
     Dosage: 4868 MILLIGRAM DAILY; 4868 MG, TOTAL
     Route: 041
     Dates: start: 20160223, end: 20160223
  2. RACECADOTRIL [Concomitant]
     Active Substance: RACECADOTRIL
     Indication: PRODUCT USED FOR UNKNOWN INDICATION
     Dosage: UNK
     Route: 065
     Dates: start: 20160210, end: 20160212
  3. FOLINIC ACID [Suspect]
     Active Substance: LEUCOVORIN
     Indication: COLORECTAL CANCER METASTATIC
     Dosage: 695.4 MILLIGRAM DAILY; 695.4 MG, TOTAL
     Route: 041
     Dates: start: 20160223, end: 20160223
  4. AFLIBERCEPT [Suspect]
     Active Substance: AFLIBERCEPT
     Indication: COLORECTAL CANCER METASTATIC
     Dosage: 260 MILLIGRAM DAILY; 260 MG, TOTAL
     Route: 041
     Dates: start: 20160223, end: 20160223
  5. FOLINIC ACID [Suspect]
     Active Substance: LEUCOVORIN
     Dosage: 695.4 MILLIGRAM DAILY; 695.4 MG, TOTAL
     Route: 041
     Dates: start: 20160125, end: 20160125
  6. FLUOROURACIL. [Suspect]
     Active Substance: FLUOROURACIL
     Indication: COLORECTAL CANCER METASTATIC
     Dosage: 4868 MILLIGRAM DAILY; 4868 MG, TOTAL
     Route: 041
     Dates: start: 20160125, end: 20160125
  7. IRINOTECAN (UNKNOWN) [Suspect]
     Active Substance: IRINOTECAN
     Indication: COLORECTAL CANCER METASTATIC
     Dosage: 312.9 MILLIGRAM DAILY; 312.9 MG, TOTAL
     Route: 041
     Dates: start: 20160223, end: 20160223

REACTIONS (6)
  - Diarrhoea [Recovered/Resolved]
  - Anaemia [Unknown]
  - Dysgeusia [Recovered/Resolved]
  - Neuropathy peripheral [Recovered/Resolved]
  - Abdominal pain [Recovered/Resolved]
  - Asthenia [Unknown]

NARRATIVE: CASE EVENT DATE: 20160307
